FAERS Safety Report 5084931-8 (Version None)
Quarter: 2006Q3

REPORT INFORMATION
  Report Type: 
  Country: None (occurrence: None)
  Receive Date: 20060815
  Receipt Date: 20060728
  Transmission Date: 20061208
  Serious: Yes (Death)
  Sender: FDA-Public Use
  Company Number: 163-21880-06030212

PATIENT
  Age: 78 Year
  Sex: Male

DRUGS (9)
  1. REVLIMID [Suspect]
     Indication: MYELODYSPLASTIC SYNDROME
     Dosage: 10 MG DAILY ORAL
     Route: 048
     Dates: start: 20060208, end: 20060101
  2. LYRICA [Concomitant]
  3. PHENOBARB (PHENOBARBITAL SODIUM) [Concomitant]
  4. NEXIUM [Concomitant]
  5. SYNTHROID [Concomitant]
  6. OXYCONTIN [Concomitant]
  7. COUMADIN [Concomitant]
  8. PERCOCET [Concomitant]
  9. ZOMETA [Concomitant]

REACTIONS (2)
  - MULTIPLE MYELOMA [None]
  - NEOPLASM PROGRESSION [None]
